FAERS Safety Report 7396227-X (Version None)
Quarter: 2011Q2

REPORT INFORMATION
  Report Type: 
  Country: None (occurrence: None)
  Receive Date: 20110406
  Receipt Date: 20110328
  Transmission Date: 20111010
  Serious: Yes (Hospitalization)
  Sender: FDA-Public Use
  Company Number: FR-NOVOPROD-322116

PATIENT
  Age: 67 Year
  Sex: Male

DRUGS (2)
  1. VICTOZA [Suspect]
     Indication: DIABETES MELLITUS INADEQUATE CONTROL
     Dosage: 0.6 MG, QD
     Route: 058
     Dates: start: 20101116, end: 20101123
  2. PYOSTACINE [Suspect]
     Indication: ERYSIPELAS
     Dosage: 3 G, QD
     Route: 048
     Dates: start: 20101112

REACTIONS (2)
  - RASH MORBILLIFORM [None]
  - RASH PRURITIC [None]
